FAERS Safety Report 9363163 (Version 1)
Quarter: 2013Q2

REPORT INFORMATION
  Report Type: Spontaneous
  Country: US (occurrence: US)
  Receive Date: 20130624
  Receipt Date: 20130624
  Transmission Date: 20140414
  Serious: Yes (Disabling)
  Sender: FDA-Public Use
  Company Number: US-JNJFOC-20130607808

PATIENT
  Age: 86 Year
  Sex: Male
  Weight: 82 kg

DRUGS (6)
  1. ZYTIGA [Suspect]
     Indication: PROSTATE CANCER METASTATIC
     Dosage: 250 MG X4 TABLETS =1000 MG
     Route: 048
     Dates: start: 201302
  2. XGEVA [Suspect]
     Indication: PROSTATE CANCER METASTATIC
     Route: 058
     Dates: start: 201302
  3. PREDNISOLONE [Suspect]
     Indication: PRODUCT USED FOR UNKNOWN INDICATION
     Route: 065
     Dates: start: 201302
  4. FINASTERIDE [Suspect]
     Indication: PROSTATE CANCER METASTATIC
     Route: 065
  5. DONASHIN (DOXAZOSIN MESILATE) [Suspect]
     Indication: PRODUCT USED FOR UNKNOWN INDICATION
     Route: 065
  6. MAXI-CALC D3 [Suspect]
     Indication: PRODUCT USED FOR UNKNOWN INDICATION
     Route: 065
     Dates: start: 201302

REACTIONS (2)
  - Arrhythmia [Not Recovered/Not Resolved]
  - Hyperkalaemia [Not Recovered/Not Resolved]
